FAERS Safety Report 21035508 (Version 3)
Quarter: 2022Q4

REPORT INFORMATION
  Report Type: Report from Study
  Country: ES (occurrence: ES)
  Receive Date: 20220701
  Receipt Date: 20221229
  Transmission Date: 20230112
  Serious: Yes (Other)
  Sender: FDA-Public Use
  Company Number: ES-ROCHE-2967369

PATIENT
  Age: 74 Year
  Sex: Male
  Weight: 78 kg

DRUGS (24)
  1. CARBOPLATIN [Suspect]
     Active Substance: CARBOPLATIN
     Indication: Small cell lung cancer extensive stage
     Dosage: 414.08 (NO UNITS PROVIDED)
     Route: 065
     Dates: start: 20210921
  2. CARBOPLATIN [Suspect]
     Active Substance: CARBOPLATIN
     Dosage: 414.08 MG
     Route: 065
     Dates: start: 20210922
  3. CARBOPLATIN [Suspect]
     Active Substance: CARBOPLATIN
     Dosage: 450 MG
     Dates: start: 20210825
  4. ETOPOSIDE [Suspect]
     Active Substance: ETOPOSIDE
     Indication: Small cell lung cancer extensive stage
     Dosage: 180 MG
     Route: 065
     Dates: start: 20210921
  5. ETOPOSIDE [Suspect]
     Active Substance: ETOPOSIDE
     Dosage: 180 MG
     Route: 042
     Dates: start: 20210922
  6. ETOPOSIDE [Suspect]
     Active Substance: ETOPOSIDE
     Dosage: 180 MG
     Route: 048
     Dates: start: 20210924
  7. ETOPOSIDE [Suspect]
     Active Substance: ETOPOSIDE
     Dosage: 180 MG
     Route: 048
     Dates: start: 20210825
  8. ATEZOLIZUMAB [Suspect]
     Active Substance: ATEZOLIZUMAB
     Indication: Small cell lung cancer extensive stage
     Dosage: 1200 MG
     Route: 041
     Dates: start: 20210825
  9. ATEZOLIZUMAB [Suspect]
     Active Substance: ATEZOLIZUMAB
     Dosage: 1200 MG
     Route: 041
     Dates: start: 20210922
  10. ATEZOLIZUMAB [Suspect]
     Active Substance: ATEZOLIZUMAB
     Dosage: 1200 MG
     Route: 041
     Dates: start: 20211013
  11. TRAMADOL [Concomitant]
     Active Substance: TRAMADOL
     Indication: Prophylaxis
     Dosage: 0.33
     Dates: start: 20210615
  12. ACETAMINOPHEN [Concomitant]
     Active Substance: ACETAMINOPHEN
     Indication: Prophylaxis
     Dosage: 0.33
     Dates: start: 20210524
  13. ONDANSETRON [Concomitant]
     Active Substance: ONDANSETRON
     Indication: Prophylaxis
     Dosage: UNK
     Dates: start: 20210823, end: 20211108
  14. ONDANSETRON [Concomitant]
     Active Substance: ONDANSETRON
     Dosage: 8 MG
     Dates: start: 20210922, end: 20210922
  15. ONDANSETRON [Concomitant]
     Active Substance: ONDANSETRON
     Dosage: 8 MG
     Dates: start: 20211018, end: 20211018
  16. ONDANSETRON [Concomitant]
     Active Substance: ONDANSETRON
     Dosage: 8 MG
     Dates: start: 20211109, end: 20211109
  17. HALOPERIDOL [Concomitant]
     Active Substance: HALOPERIDOL
     Indication: Prophylaxis
     Dosage: 0.33
     Dates: start: 20210827, end: 20211108
  18. ENALAPRIL [Concomitant]
     Active Substance: ENALAPRIL
     Indication: Prophylaxis
     Dosage: 1 DF
     Dates: start: 20190704
  19. DEXAMETHASONE [Concomitant]
     Active Substance: DEXAMETHASONE
     Dosage: 12 MG
     Dates: start: 20211018, end: 20211018
  20. DEXAMETHASONE [Concomitant]
     Active Substance: DEXAMETHASONE
     Dosage: 12 MG
     Dates: start: 20210922, end: 20210922
  21. DEXAMETHASONE [Concomitant]
     Active Substance: DEXAMETHASONE
     Dosage: 12 MG
     Dates: start: 20211109, end: 20211109
  22. METHYLPREDNISOLONE ACEPONATE [Concomitant]
     Active Substance: METHYLPREDNISOLONE ACEPONATE
     Dosage: UNK
     Dates: start: 20171009
  23. ZOLEDRONIC ACID [Concomitant]
     Active Substance: ZOLEDRONIC ACID
     Dosage: 4 MG
     Dates: start: 20210922, end: 20210922
  24. ZOLEDRONIC ACID [Concomitant]
     Active Substance: ZOLEDRONIC ACID
     Dosage: 8 MG
     Dates: start: 20211018, end: 20211018

REACTIONS (4)
  - Neutropenia [Recovered/Resolved]
  - Weight decreased [Unknown]
  - Nausea [Recovered/Resolved]
  - Weight increased [Unknown]

NARRATIVE: CASE EVENT DATE: 20211013
